FAERS Safety Report 9932955 (Version 1)
Quarter: 2014Q1

REPORT INFORMATION
  Report Type: Spontaneous
  Country: US (occurrence: US)
  Receive Date: 20140228
  Receipt Date: 20140228
  Transmission Date: 20141002
  Serious: No
  Sender: FDA-Public Use
  Company Number: US-ABBVIE-13P-163-1063796-00

PATIENT
  Age: 21 Year
  Sex: Male

DRUGS (2)
  1. ANDROGEL [Suspect]
     Indication: BLOOD TESTOSTERONE DECREASED
     Dates: start: 201212, end: 201301
  2. ANDROGEL [Suspect]
     Dates: start: 201301, end: 201302

REACTIONS (1)
  - Blood testosterone decreased [Not Recovered/Not Resolved]
